FAERS Safety Report 11501276 (Version 1)
Quarter: 2015Q3

REPORT INFORMATION
  Report Type: Spontaneous
  Country: PT (occurrence: PT)
  Receive Date: 20150914
  Receipt Date: 20150914
  Transmission Date: 20151125
  Serious: Yes (Disabling)
  Sender: FDA-Public Use
  Company Number: PT-DEP_12604_2015

PATIENT
  Age: 80 Year
  Sex: Female

DRUGS (1)
  1. PALEXIA [Suspect]
     Active Substance: TAPENTADOL HYDROCHLORIDE
     Indication: PAIN
     Dosage: DF
     Route: 048
     Dates: start: 20150810, end: 20150817

REACTIONS (3)
  - Vomiting [Unknown]
  - Functional gastrointestinal disorder [Unknown]
  - Malaise [Unknown]

NARRATIVE: CASE EVENT DATE: 20150812
